FAERS Safety Report 8468126-3 (Version None)
Quarter: 2012Q2

REPORT INFORMATION
  Report Type: 
  Country: None (occurrence: None)
  Receive Date: 20120626
  Receipt Date: 20120621
  Transmission Date: 20120825
  Serious: Yes (Hospitalization)
  Sender: FDA-Public Use
  Company Number: CH-ROCHE-1081313

PATIENT
  Sex: Male

DRUGS (10)
  1. EPOETIN ALFA [Concomitant]
     Indication: ANAEMIA
     Route: 058
     Dates: start: 20120120
  2. PEGASYS [Suspect]
     Indication: HIV INFECTION
  3. TRUVADA [Concomitant]
     Indication: HIV INFECTION
     Dosage: 245/200 MG
     Route: 048
     Dates: start: 20110524
  4. COPEGUS [Suspect]
     Indication: HEPATITIS C
     Route: 048
     Dates: start: 20120104
  5. BI 201335 (HCV PROTEASE INHIBITOR) [Suspect]
     Indication: HEPATITIS C
     Route: 048
     Dates: start: 20120104
  6. RITONAVIR [Concomitant]
     Indication: HIV INFECTION
     Route: 048
     Dates: start: 20110519
  7. PEGASYS [Suspect]
     Indication: HEPATITIS C
     Route: 058
     Dates: start: 20120104
  8. COPEGUS [Suspect]
     Indication: HIV INFECTION
  9. BI 201335 (HCV PROTEASE INHIBITOR) [Suspect]
     Indication: HIV INFECTION
  10. DARUNAVIR HYDRATE [Concomitant]
     Indication: HIV INFECTION
     Route: 048
     Dates: start: 20110519

REACTIONS (4)
  - ESCHERICHIA INFECTION [None]
  - PROSTATIC DISORDER [None]
  - UROSEPSIS [None]
  - GRANULOCYTOPENIA [None]
